FAERS Safety Report 7370202-3 (Version None)
Quarter: 2011Q1

REPORT INFORMATION
  Report Type: 
  Country: None (occurrence: None)
  Receive Date: 20110323
  Receipt Date: 20100416
  Transmission Date: 20110831
  Serious: Yes (Life-Threatening)
  Sender: FDA-Public Use
  Company Number: CA-ASTRAZENECA-2010SE14450

PATIENT
  Age: 64 Year
  Sex: Female
  Weight: 125 kg

DRUGS (8)
  1. ZOCOR [Suspect]
  2. FOSAMAX [Suspect]
  3. CALCIUM WITH VITAMIN D [Concomitant]
  4. AVANDAMET [Suspect]
  5. LISINOPRIL [Suspect]
     Route: 048
  6. EXEMESTANE [Suspect]
     Indication: BREAST CANCER
     Dates: start: 20060101
  7. METOPROLOL [Suspect]
  8. TRIAMTERENE AND HYDROCHLOROTHIAZIDE [Suspect]

REACTIONS (1)
  - PULMONARY EMBOLISM [None]
